FAERS Safety Report 8409271-8 (Version None)
Quarter: 2012Q2

REPORT INFORMATION
  Report Type: 
  Country: None (occurrence: None)
  Receive Date: 20120605
  Receipt Date: 20120321
  Transmission Date: 20120825
  Serious: Yes (Life-Threatening, Hospitalization, Other)
  Sender: FDA-Public Use
  Company Number: US-AMGEN-USASP2012005514

PATIENT
  Age: 54 Year
  Sex: Female
  Weight: 68 kg

DRUGS (13)
  1. CYCLOSPORINE [Suspect]
     Indication: BREAST CANCER
     Dosage: 1056 MG, UNK
     Route: 042
     Dates: start: 20111110
  2. PEGFILGRASTIM [Suspect]
     Indication: CHEMOTHERAPY
     Dosage: 480 MUG, UNK
     Dates: start: 20111222
  3. LEVAQUIN [Concomitant]
  4. ALOXI [Concomitant]
  5. BEVACIZUMAB [Suspect]
     Indication: BREAST CANCER
     Dosage: 10 MG/KG, PER CHEMO REGIM
     Dates: start: 20110811
  6. CARBOPLATIN [Suspect]
     Indication: BREAST CANCER
     Dosage: 6 DF, PER CHEMO REGIM
     Route: 042
     Dates: start: 20110811
  7. TYLENOL (CAPLET) [Concomitant]
     Dosage: 650 MG, UNK
  8. COMPAZINE [Concomitant]
  9. PACLITAXEL [Suspect]
     Indication: BREAST CANCER
     Dosage: 80 MG/M2, PER CHEMO REGIM
     Route: 042
     Dates: start: 20110811
  10. DOXORUBICIN HCL [Suspect]
     Indication: BREAST CANCER
     Dosage: 105 MG, UNK
     Route: 042
     Dates: start: 20111110
  11. DECADRON [Concomitant]
     Dosage: 10 MG, UNK
     Dates: start: 20111110
  12. EMEND [Concomitant]
  13. ZOFRAN [Concomitant]

REACTIONS (10)
  - PLATELET COUNT DECREASED [None]
  - HEADACHE [None]
  - NEUTROPHIL COUNT DECREASED [None]
  - WHITE BLOOD CELL COUNT DECREASED [None]
  - FEBRILE NEUTROPENIA [None]
  - CHILLS [None]
  - HYPOMAGNESAEMIA [None]
  - ANAEMIA [None]
  - LEUKOPENIA [None]
  - HYPOKALAEMIA [None]
